FAERS Safety Report 11991924 (Version 1)
Quarter: 2016Q1

REPORT INFORMATION
  Report Type: Spontaneous
  Country: US (occurrence: US)
  Receive Date: 20160203
  Receipt Date: 20160203
  Transmission Date: 20160526
  Serious: No
  Sender: FDA-Public Use
  Company Number: US-JNJFOC-20151210654

PATIENT
  Age: 7 Month
  Sex: Male
  Weight: 8.16 kg

DRUGS (3)
  1. MOTRIN [Suspect]
     Active Substance: IBUPROFEN
     Indication: EAR INFECTION
     Dosage: 1X
     Route: 048
     Dates: start: 20151211, end: 20151211
  2. MOTRIN [Suspect]
     Active Substance: IBUPROFEN
     Indication: TEETHING
     Dosage: 1X
     Route: 048
     Dates: start: 20151211, end: 20151211
  3. CEFDINIR. [Concomitant]
     Active Substance: CEFDINIR
     Indication: PRODUCT USED FOR UNKNOWN INDICATION
     Route: 065

REACTIONS (4)
  - Product use issue [Recovered/Resolved]
  - Off label use [Recovered/Resolved]
  - Retching [Recovered/Resolved]
  - Drug administered to patient of inappropriate age [Recovered/Resolved]

NARRATIVE: CASE EVENT DATE: 20151211
